FAERS Safety Report 13316415 (Version 1)
Quarter: 2017Q1

REPORT INFORMATION
  Report Type: Spontaneous
  Country: US (occurrence: US)
  Receive Date: 20170310
  Receipt Date: 20170310
  Transmission Date: 20170428
  Serious: No
  Sender: FDA-Public Use
  Company Number: US-AUROBINDO-AUR-APU-2016-12302

PATIENT
  Sex: Male

DRUGS (2)
  1. CEPHALEXIN 500 MG [Suspect]
     Active Substance: CEPHALEXIN
     Indication: IMPETIGO
     Dosage: 500 MG, UNK
     Route: 065
  2. LEVETIRACETAM TABLETS 500 MG [Suspect]
     Active Substance: LEVETIRACETAM
     Indication: IMPETIGO
     Dosage: 2 TABLET DAILY
     Route: 065
     Dates: start: 20160920, end: 20160927

REACTIONS (2)
  - No adverse event [Unknown]
  - Drug dispensing error [Unknown]
